FAERS Safety Report 20160759 (Version 1)
Quarter: 2021Q4

REPORT INFORMATION
  Report Type: Spontaneous
  Country: US (occurrence: None)
  Receive Date: 20211208
  Receipt Date: 20211208
  Transmission Date: 20220303
  Serious: No
  Sender: FDA-Public Use
  Company Number: 2021A855092

PATIENT
  Sex: Female

DRUGS (1)
  1. TAGRISSO [Suspect]
     Active Substance: OSIMERTINIB
     Indication: Lung carcinoma cell type unspecified stage 0
     Route: 048
     Dates: start: 202109

REACTIONS (4)
  - Fatigue [Unknown]
  - Blood iron decreased [Unknown]
  - Neuropathy peripheral [Unknown]
  - Skin fissures [Unknown]

NARRATIVE: CASE EVENT DATE: 20211201
